FAERS Safety Report 9494602 (Version 1)
Quarter: 2013Q3

REPORT INFORMATION
  Report Type: Spontaneous
  Country: FR (occurrence: FR)
  Receive Date: 20130903
  Receipt Date: 20130903
  Transmission Date: 20140515
  Serious: Yes (Hospitalization)
  Sender: FDA-Public Use
  Company Number: FR-PFIZER INC-2013248950

PATIENT
  Age: 63 Year
  Sex: Male

DRUGS (5)
  1. TRIFLUCAN [Suspect]
     Dosage: UNK
     Route: 048
     Dates: start: 20130708, end: 20130723
  2. TRIFLUCAN [Suspect]
     Dosage: UNK
     Route: 048
     Dates: start: 20130729, end: 20130808
  3. CEFTRIAXONE [Suspect]
     Dosage: UNK
     Dates: start: 20130725, end: 20130808
  4. ECONAZOLE [Concomitant]
     Dosage: UNK
     Dates: start: 20130708, end: 20130723
  5. ECONAZOLE [Concomitant]
     Dosage: UNK
     Dates: start: 20130729, end: 20130808

REACTIONS (1)
  - Eosinophilia [Recovered/Resolved]
